FAERS Safety Report 17941031 (Version 1)
Quarter: 2020Q2

REPORT INFORMATION
  Report Type: Report from Study
  Country: JP (occurrence: JP)
  Receive Date: 20200624
  Receipt Date: 20200624
  Transmission Date: 20200714
  Serious: Yes (Other)
  Sender: FDA-Public Use
  Company Number: JP-EMD SERONO-9148177

PATIENT
  Age: 43 Year
  Sex: Female
  Weight: 113 kg

DRUGS (7)
  1. BAVENCIO [Suspect]
     Active Substance: AVELUMAB
     Indication: METASTATIC RENAL CELL CARCINOMA
     Route: 041
     Dates: start: 20200123
  2. BAVENCIO [Suspect]
     Active Substance: AVELUMAB
     Route: 041
     Dates: start: 20200220, end: 20200220
  3. INLYTA [Suspect]
     Active Substance: AXITINIB
     Route: 048
     Dates: end: 20200305
  4. BAVENCIO [Suspect]
     Active Substance: AVELUMAB
     Route: 041
  5. ACETAMINOPHEN. [Concomitant]
     Active Substance: ACETAMINOPHEN
     Indication: PREMEDICATION
     Route: 041
     Dates: start: 20200123, end: 20200220
  6. DIPHENHYDRAMINE. [Concomitant]
     Active Substance: DIPHENHYDRAMINE
     Indication: PREMEDICATION
     Route: 041
     Dates: start: 20200123, end: 20200220
  7. INLYTA [Suspect]
     Active Substance: AXITINIB
     Indication: METASTATIC RENAL CELL CARCINOMA
     Route: 048
     Dates: start: 20200123

REACTIONS (6)
  - Aspartate aminotransferase increased [Recovering/Resolving]
  - Hepatic function abnormal [Recovering/Resolving]
  - Hypertension [Recovering/Resolving]
  - Malaise [Recovering/Resolving]
  - Alanine aminotransferase increased [Recovering/Resolving]
  - Thyroiditis [Recovering/Resolving]

NARRATIVE: CASE EVENT DATE: 20200127
